FAERS Safety Report 9595051 (Version 1)
Quarter: 2013Q4

REPORT INFORMATION
  Report Type: Spontaneous
  Country: US (occurrence: None)
  Receive Date: 20131002
  Receipt Date: 20131002
  Transmission Date: 20140711
  Serious: Yes (Life-Threatening)
  Sender: FDA-Public Use
  Company Number: AUR-APL-2013-08118

PATIENT
  Age: 10 Year
  Sex: Female

DRUGS (9)
  1. LEVETIRACETAM (LEVETIRACETAM) [Suspect]
     Indication: PRODUCT USED FOR UNKNOWN INDICATION
     Dosage: (1000 MG, 1 D), UNKNOWN
  2. LAMOTRIGINE (LAMOTRIGINE) [Suspect]
     Indication: PRODUCT USED FOR UNKNOWN INDICATION
     Dosage: (200 MG, 1 D), UNKNOWN?
  3. FOSPHENYTOIN SODIUM [Suspect]
     Indication: STATUS EPILEPTICUS
     Dosage: 20 MG/KG, UNKNOWN)
  4. LORAZEPAM (LORAZEPAM) [Suspect]
     Indication: GRAND MAL CONVULSION
  5. MIDAZOLAM (MIDAZOLAM) [Suspect]
  6. DIAZEPAM (DIAZEPAM) [Suspect]
     Route: 054
  7. PENTOBARBITAL [Suspect]
     Dosage: 0.2 MG/KG/H, UNKNOWN
  8. DIAZEPAM (DIAZEPAM) [Suspect]
     Dosage: (10 MG), RECTAL
  9. CLONAZEPAM (CLONAZEPAM) (CLONAZEPAM) [Concomitant]

REACTIONS (14)
  - Lactic acidosis [None]
  - Hypothermia [None]
  - Hypernatraemia [None]
  - Hypokalaemia [None]
  - Tracheitis [None]
  - Hypertension [None]
  - Haematuria [None]
  - Hypotension [None]
  - Oliguria [None]
  - Duodenal ulcer [None]
  - Haemorrhage [None]
  - Staphylococcal infection [None]
  - Status epilepticus [None]
  - Grand mal convulsion [None]
